FAERS Safety Report 8230103-5 (Version None)
Quarter: 2012Q1

REPORT INFORMATION
  Report Type: 
  Country: None (occurrence: None)
  Receive Date: 20120323
  Receipt Date: 20120319
  Transmission Date: 20120608
  Serious: No
  Sender: FDA-Public Use
  Company Number: US-PFIZER INC-2012071959

PATIENT
  Sex: Female
  Weight: 72.562 kg

DRUGS (14)
  1. CINNAMON [Concomitant]
     Indication: BLOOD GLUCOSE INCREASED
     Dosage: UNK
  2. REVATIO [Suspect]
     Dosage: 20 MG, 2X/DAY
     Route: 048
  3. LEVOTHYROXINE [Concomitant]
     Indication: THYROID DISORDER
     Dosage: UNK, DAILY
  4. VITAMIN E [Concomitant]
     Dosage: UNK
  5. VITAMIN D [Concomitant]
     Dosage: UNK
  6. ASCORBIC ACID [Concomitant]
     Dosage: UNK
  7. CALCIUM [Concomitant]
     Dosage: UNK
  8. WARFARIN [Concomitant]
     Indication: THROMBOSIS PROPHYLAXIS
     Dosage: UNK, DAILY
  9. PRILOSEC [Concomitant]
     Indication: DYSPEPSIA
     Dosage: UNK
  10. LOVASTATIN [Concomitant]
     Dosage: UNK, DAILY
  11. VITAMIN B-12 [Concomitant]
     Dosage: UNK
  12. REVATIO [Suspect]
     Indication: PULMONARY HYPERTENSION
     Dosage: 20 MG, 3X/DAY
     Route: 048
     Dates: start: 20070501
  13. EFFEXOR XR [Concomitant]
     Indication: DEPRESSION
     Dosage: UNK, DAILY
  14. MULTI-VITAMINS [Concomitant]
     Dosage: UNK

REACTIONS (4)
  - HYPOTENSION [None]
  - DIZZINESS [None]
  - VERTIGO [None]
  - HALLUCINATION [None]
